FAERS Safety Report 6702794-9 (Version None)
Quarter: 2010Q2

REPORT INFORMATION
  Report Type: 
  Country: None (occurrence: None)
  Receive Date: 20100429
  Receipt Date: 20100419
  Transmission Date: 20101027
  Serious: Yes (Hospitalization)
  Sender: FDA-Public Use
  Company Number: ES-ELI_LILLY_AND_COMPANY-ES201004005318

PATIENT
  Sex: Female

DRUGS (11)
  1. FORTEO [Suspect]
     Indication: OSTEOPOROSIS
     Dosage: 20 UG, DAILY (1/D)
     Route: 058
     Dates: start: 20090929
  2. NORVASC [Concomitant]
     Indication: HYPERTENSION
     Dosage: 5 MG, DAILY (1/D)
     Route: 048
  3. FUROSEMIDA                         /00032602/ [Concomitant]
     Indication: HYPERTENSION
     Dosage: 1 D/F, DAILY (1/D)
     Route: 048
  4. DACORTIN [Concomitant]
     Indication: RENAL FAILURE
     Dosage: UNK, ALTERNATE DAYS
     Route: 048
  5. LEVOTHROID [Concomitant]
     Indication: HYPOTHYROIDISM
     Dosage: 1 TABLET, 24HRS
     Route: 048
  6. LYRICA [Concomitant]
     Indication: PAIN
     Dosage: 1 TABLET, 24HRS
     Route: 048
  7. SINTROM [Concomitant]
     Indication: THROMBOSIS
     Dosage: 0.5 D/F, OTHER
     Route: 048
  8. SINTROM [Concomitant]
     Dosage: 0.25 D/F, OTHER
     Route: 048
  9. DURAGESIC-100 [Concomitant]
     Indication: PAIN
     Dosage: 0.5 TABLET, DAILY (1/D)
     Route: 062
  10. SIMVASTATIN [Concomitant]
     Indication: DYSLIPIDAEMIA
     Dosage: 1 TABLET, 24HRS
     Route: 048
  11. ALOPURINOL [Concomitant]
     Dosage: 1 TABLET, 24HRS
     Route: 048

REACTIONS (2)
  - THROMBOSIS [None]
  - WEIGHT DECREASED [None]
